FAERS Safety Report 7294809-7 (Version None)
Quarter: 2011Q1

REPORT INFORMATION
  Report Type: 
  Country: None (occurrence: None)
  Receive Date: 20110203
  Receipt Date: 20110126
  Transmission Date: 20110831
  Serious: Yes (Other)
  Sender: FDA-Public Use
  Company Number: WAES 1101USA03103

PATIENT
  Age: 51 Year
  Sex: Female

DRUGS (15)
  1. GLUCOTROL [Concomitant]
  2. VITAMIN D (UNSPECIFIED) [Concomitant]
  3. GLUCERNA [Concomitant]
  4. COUMADIN [Concomitant]
  5. HUMALOG [Concomitant]
  6. PROZAC [Concomitant]
  7. XANAX [Concomitant]
  8. HYDROCHLOROTHIAZIDE [Concomitant]
  9. LIPITOR [Suspect]
     Indication: BLOOD CHOLESTEROL INCREASED
  10. LANTUS [Concomitant]
  11. LOPRESSOR [Suspect]
  12. NEURONTIN [Concomitant]
  13. GLUCOPHAGE [Concomitant]
  14. SINEMET [Concomitant]
  15. ZOCOR [Suspect]
     Indication: BLOOD CHOLESTEROL INCREASED
     Dosage: PO
     Route: 048

REACTIONS (3)
  - LIP SWELLING [None]
  - PHARYNGEAL OEDEMA [None]
  - ANAPHYLACTIC SHOCK [None]
